APPROVED DRUG PRODUCT: THEROXIDIL
Active Ingredient: MINOXIDIL
Strength: 2%
Dosage Form/Route: SOLUTION;TOPICAL
Application: A078176 | Product #001
Applicant: PURE SOURCE LLC
Approved: Nov 9, 2007 | RLD: No | RS: No | Type: OTC